FAERS Safety Report 11704449 (Version 3)
Quarter: 2017Q4

REPORT INFORMATION
  Report Type: Spontaneous
  Country: US (occurrence: US)
  Receive Date: 20151106
  Receipt Date: 20171218
  Transmission Date: 20180320
  Serious: No
  Sender: FDA-Public Use
  Company Number: US-PFIZER INC-2015339911

PATIENT
  Age: 31 Year
  Sex: Female

DRUGS (1)
  1. SUTENT [Suspect]
     Active Substance: SUNITINIB MALATE
     Indication: NEOPLASM MALIGNANT
     Dosage: 50 MG, CYCLIC AT 1 CAPSULE EVERY DAY FOR 4 WEEKS ON AND 2 WEEKS OFF
     Route: 048
     Dates: start: 201412

REACTIONS (4)
  - Pain in extremity [Unknown]
  - Drug dose omission [Unknown]
  - Blister [Unknown]
  - Palmar-plantar erythrodysaesthesia syndrome [Unknown]
